FAERS Safety Report 8484083-8 (Version None)
Quarter: 2012Q3

REPORT INFORMATION
  Report Type: 
  Country: None (occurrence: None)
  Receive Date: 20120703
  Receipt Date: 20120620
  Transmission Date: 20120928
  Serious: Yes (Hospitalization)
  Sender: FDA-Public Use
  Company Number: GB-ELI_LILLY_AND_COMPANY-GB201206007131

PATIENT
  Sex: Male

DRUGS (2)
  1. LEVEMIR [Concomitant]
  2. HUMALOG [Suspect]
     Dosage: UNK

REACTIONS (3)
  - INJECTION SITE PAIN [None]
  - SKIN REACTION [None]
  - HOSPITALISATION [None]
